FAERS Safety Report 7414351-X (Version None)
Quarter: 2011Q2

REPORT INFORMATION
  Report Type: 
  Country: None (occurrence: None)
  Receive Date: 20110414
  Receipt Date: 20110402
  Transmission Date: 20111010
  Serious: Yes (Other)
  Sender: FDA-Public Use
  Company Number: US-JNJFOC-20110100612

PATIENT
  Sex: Male

DRUGS (7)
  1. KLONOPIN [Concomitant]
     Route: 048
  2. CITALOPRAM HYDROBROMIDE [Concomitant]
     Route: 048
  3. RISPERIDONE [Suspect]
     Route: 048
  4. RISPERIDONE [Suspect]
     Indication: SCHIZOPHRENIA
     Route: 048
  5. RISPERIDONE [Suspect]
     Route: 048
  6. RISPERIDONE [Suspect]
     Route: 048
  7. RISPERIDONE [Suspect]
     Route: 048

REACTIONS (7)
  - SUICIDAL IDEATION [None]
  - ADVERSE EVENT [None]
  - ACTIVITIES OF DAILY LIVING IMPAIRED [None]
  - DECREASED INTEREST [None]
  - PANIC ATTACK [None]
  - LOSS OF LIBIDO [None]
  - WITHDRAWAL SYNDROME [None]
